FAERS Safety Report 13061840 (Version 1)
Quarter: 2016Q4

REPORT INFORMATION
  Report Type: Other
  Country: PT (occurrence: PT)
  Receive Date: 20161226
  Receipt Date: 20161226
  Transmission Date: 20170207
  Serious: Yes (Hospitalization)
  Sender: FDA-Public Use
  Company Number: PT-AJANTA PHARMA USA INC.-1061274

PATIENT
  Age: 38 Year
  Sex: Male

DRUGS (4)
  1. OLANZAPINE (ANDA 206711) [Suspect]
     Active Substance: OLANZAPINE
     Indication: PRODUCT USED FOR UNKNOWN INDICATION
  2. CARBAMAZEPINE. [Concomitant]
     Active Substance: CARBAMAZEPINE
  3. BIPERIDEN [Concomitant]
     Active Substance: BIPERIDEN
  4. MELPERONE [Concomitant]
     Active Substance: MELPERONE

REACTIONS (1)
  - Colitis ischaemic [Recovered/Resolved]
